FAERS Safety Report 4580219-X (Version None)
Quarter: 2005Q1

REPORT INFORMATION
  Report Type: 
  Country: None (occurrence: None)
  Receive Date: 20050211
  Receipt Date: 20030507
  Transmission Date: 20050727
  Serious: Yes (Hospitalization)
  Sender: FDA-Public Use
  Company Number: GXKR2003JP00586

PATIENT
  Age: 72 Year
  Sex: Male

DRUGS (5)
  1. DICLOFENAC (NGX) (DICLOFENAC) UNKNOWN [Suspect]
     Indication: POST PROCEDURAL PAIN
     Dosage: 25 MG, RECTAL
     Route: 055
  2. AMLODIPINE [Concomitant]
  3. NICORANDIL (NICORANDIL) [Concomitant]
  4. DILTIAZEM [Concomitant]
  5. ZOPICLONE (ZOPICLONE) [Concomitant]

REACTIONS (2)
  - DRUG HYPERSENSITIVITY [None]
  - PNEUMONITIS [None]
